FAERS Safety Report 16583398 (Version 3)
Quarter: 2019Q3

REPORT INFORMATION
  Report Type: Spontaneous
  Country: US (occurrence: US)
  Receive Date: 20190717
  Receipt Date: 20190821
  Transmission Date: 20191004
  Serious: Yes (Other)
  Sender: FDA-Public Use
  Company Number: US-PFIZER INC-2019299478

PATIENT
  Age: 86 Year
  Sex: Male

DRUGS (25)
  1. XALKORI [Suspect]
     Active Substance: CRIZOTINIB
     Indication: METASTASES TO BONE
  2. CARBOPLATIN. [Concomitant]
     Active Substance: CARBOPLATIN
     Dosage: 360 MG, UNK (IV Q3 WEEKS)
     Route: 042
  3. FOLIC ACID. [Concomitant]
     Active Substance: FOLIC ACID
     Dosage: 1 DF, 1X/DAY
     Route: 048
     Dates: start: 20190509
  4. KEYTRUDA [Concomitant]
     Active Substance: PEMBROLIZUMAB
     Dosage: 200 MG, UNK (PER IV Q3 WEEKS)
     Route: 042
     Dates: start: 20190509
  5. PROCRIT [Concomitant]
     Active Substance: ERYTHROPOIETIN
     Indication: CHRONIC LYMPHOCYTIC LEUKAEMIA
     Dosage: UNK (40 K SQ  Q 21 DAYS)
     Route: 058
     Dates: start: 20190523
  6. PROCRIT [Concomitant]
     Active Substance: ERYTHROPOIETIN
     Dosage: UNK, CYCLIC ( Q 4 WK, 12 CYCLES)
     Dates: start: 20150202
  7. CARBOPLATIN/PEMETREXED [Concomitant]
     Indication: LUNG NEOPLASM MALIGNANT
     Dosage: UNK, CYCLIC (EVERY 3 WEEKS, 14 CYCLES)
     Dates: start: 20190510, end: 20190520
  8. COMPAZINE [Concomitant]
     Active Substance: PROCHLORPERAZINE MALEATE
     Indication: NAUSEA
     Dosage: 10 MG, AS NEEDED (EVERY 4-6 HOURS AS NEEDED)
     Route: 048
  9. PALONOSETRON. [Concomitant]
     Active Substance: PALONOSETRON HYDROCHLORIDE
     Dosage: 250 UG, UNK (250 MCG PER IV Q 3 WEEKS)
     Route: 042
     Dates: start: 20190508
  10. VALCYTE [Concomitant]
     Active Substance: VALGANCICLOVIR HYDROCHLORIDE
     Dosage: 900 MG, DAILY
     Route: 048
     Dates: start: 20190129
  11. ZOFRAN [Concomitant]
     Active Substance: ONDANSETRON HYDROCHLORIDE
     Indication: NAUSEA
     Dosage: 8 MG, AS NEEDED (EVERY 6-8 HOURS AS NEEDED)
     Dates: start: 20190509
  12. AMITRIPTYLINE [Concomitant]
     Active Substance: AMITRIPTYLINE
     Dosage: 50 MG, 1X/DAY (AS NEEDED AT BEDTIME)
     Route: 048
     Dates: start: 20130114
  13. MEGESTROL [Concomitant]
     Active Substance: MEGESTROL
     Dosage: 20 ML, DAILY
     Route: 048
     Dates: start: 20190717
  14. XGEVA [Concomitant]
     Active Substance: DENOSUMAB
     Indication: HAEMATOPOIETIC NEOPLASM
     Dosage: 120 MG, MONTHLY
     Route: 058
     Dates: start: 20190411
  15. ZOFRAN [Concomitant]
     Active Substance: ONDANSETRON HYDROCHLORIDE
     Indication: VOMITING
  16. PEGFILGRASTIM [Concomitant]
     Active Substance: PEGFILGRASTIM
     Indication: NEOPLASM MALIGNANT
     Dosage: UNK
     Dates: start: 20190627, end: 20190627
  17. COMPAZINE [Concomitant]
     Active Substance: PROCHLORPERAZINE MALEATE
     Indication: VOMITING
  18. FINASTERIDE. [Concomitant]
     Active Substance: FINASTERIDE
     Dosage: 1 DF, 1X/DAY
     Route: 048
     Dates: start: 20190518
  19. OMEPRAZOLE. [Concomitant]
     Active Substance: OMEPRAZOLE
     Dosage: 20 MG, 1X/DAY
     Route: 048
     Dates: start: 20130114
  20. TAMSULOSIN [Concomitant]
     Active Substance: TAMSULOSIN
     Dosage: 0.4 MG, 1X/DAY
     Route: 048
     Dates: start: 20140814
  21. DEXAMETHASONE. [Concomitant]
     Active Substance: DEXAMETHASONE
     Dosage: 4 MG, 2X/DAY
     Route: 048
     Dates: start: 20190509
  22. XALKORI [Suspect]
     Active Substance: CRIZOTINIB
     Indication: LUNG NEOPLASM MALIGNANT
     Dosage: 200 MG, 2X/DAY
     Route: 048
     Dates: start: 20190531
  23. ALIMTA [Concomitant]
     Active Substance: PEMETREXED DISODIUM
     Dosage: 840 MG, UNK (840 MG PER IV EVERY 3 WEEKS)
     Route: 042
     Dates: start: 20190508
  24. XGEVA [Concomitant]
     Active Substance: DENOSUMAB
     Indication: MALIGNANT LYMPHOID NEOPLASM
     Dosage: UNK, CYCLIC (Q 4 WK 12 CYCLES)
     Dates: start: 20190502
  25. VALCYTE [Concomitant]
     Active Substance: VALGANCICLOVIR HYDROCHLORIDE
     Dosage: 900 MG, 2X/DAY
     Route: 048
     Dates: start: 20170501

REACTIONS (5)
  - Neutropenia [Unknown]
  - Hypoacusis [Unknown]
  - Diarrhoea [Recovering/Resolving]
  - Malaise [Unknown]
  - Agranulocytosis [Unknown]

NARRATIVE: CASE EVENT DATE: 20190627
